FAERS Safety Report 7789600-9 (Version None)
Quarter: 2011Q3

REPORT INFORMATION
  Report Type: 
  Country: None (occurrence: None)
  Receive Date: 20110930
  Receipt Date: 20110926
  Transmission Date: 20111222
  Serious: Yes (Death)
  Sender: FDA-Public Use
  Company Number: HN-PFIZER INC-2011230266

PATIENT
  Age: 19 Year
  Sex: Male

DRUGS (1)
  1. VFEND [Suspect]
     Indication: CANDIDIASIS
     Dosage: UNK
     Dates: start: 20110911

REACTIONS (2)
  - HYPOTENSION [None]
  - BRADYCARDIA [None]
